FAERS Safety Report 18535296 (Version 1)
Quarter: 2020Q4

REPORT INFORMATION
  Report Type: Other
  Country: US (occurrence: US)
  Receive Date: 20201123
  Receipt Date: 20201123
  Transmission Date: 20210114
  Serious: Yes (Death)
  Sender: FDA-Public Use
  Company Number: US-ROCHE-2714758

PATIENT
  Sex: Female

DRUGS (2)
  1. OCREVUS [Suspect]
     Active Substance: OCRELIZUMAB
     Indication: MULTIPLE SCLEROSIS
     Dosage: PRESCRIBED WITH 300 MG IV ONCE, REPEAT ONCE IN 2 WEEKS AND LATER 600 MG, EVERY 6 MONTHS?DATE OF TREA
     Route: 042
     Dates: start: 20191017
  2. OCREVUS [Suspect]
     Active Substance: OCRELIZUMAB
     Route: 042
     Dates: start: 20190403

REACTIONS (1)
  - Death [Fatal]
